FAERS Safety Report 8654560 (Version 2)
Quarter: 2013Q1

REPORT INFORMATION
  Report Type: Report from Study
  Country: US (occurrence: US)
  Receive Date: 20120709
  Receipt Date: 20130325
  Transmission Date: 20140127
  Serious: Yes (Hospitalization, Other)
  Sender: FDA-Public Use
  Company Number: US-ROCHE-1065864

PATIENT
  Age: 64 Year
  Sex: Male
  Weight: 74.46 kg

DRUGS (5)
  1. CAPECITABINE [Suspect]
     Indication: METASTATIC GASTRIC CANCER
     Route: 048
     Dates: start: 20120405, end: 20120510
  2. CAPECITABINE [Suspect]
     Route: 048
     Dates: start: 20120614
  3. TAXOTERE [Concomitant]
     Indication: METASTATIC GASTRIC CANCER
     Route: 042
     Dates: start: 201204
  4. MONISTAT [Concomitant]
     Indication: FUNGAL INFECTION
     Route: 061
     Dates: start: 20120501
  5. CORONAL [Concomitant]
     Indication: FUNGAL INFECTION
     Route: 061
     Dates: start: 20120501

REACTIONS (16)
  - Rash [Recovered/Resolved]
  - Furuncle [Recovered/Resolved]
  - Furuncle [Recovered/Resolved]
  - Alopecia [Not Recovered/Not Resolved]
  - Fungal skin infection [Recovered/Resolved]
  - Pyrexia [Recovered/Resolved]
  - Blood count abnormal [Recovered/Resolved]
  - Dysgeusia [Not Recovered/Not Resolved]
  - Skin disorder [Recovered/Resolved]
  - Erythema [Recovered/Resolved]
  - Rash [Unknown]
  - Fatigue [Not Recovered/Not Resolved]
  - Cough [Recovered/Resolved]
  - Nasopharyngitis [Recovered/Resolved]
  - Vomiting [Recovered/Resolved]
  - Diarrhoea [Recovered/Resolved]
